FAERS Safety Report 7747829-X (Version None)
Quarter: 2011Q3

REPORT INFORMATION
  Report Type: 
  Country: None (occurrence: None)
  Receive Date: 20110913
  Receipt Date: 20110906
  Transmission Date: 20111222
  Serious: Yes (Hospitalization, Other)
  Sender: FDA-Public Use
  Company Number: JP-JNJFOC-20110709880

PATIENT
  Sex: Male
  Weight: 57 kg

DRUGS (6)
  1. REMICADE [Suspect]
     Route: 042
     Dates: start: 20100625
  2. REMICADE [Suspect]
     Route: 042
     Dates: start: 20101222
  3. REMICADE [Suspect]
     Dosage: 6TH DOSE
     Route: 042
     Dates: start: 20110223
  4. REMICADE [Suspect]
     Route: 042
     Dates: start: 20100608
  5. REMICADE [Suspect]
     Route: 042
     Dates: start: 20100730
  6. REMICADE [Suspect]
     Indication: CROHN'S DISEASE
     Route: 042
     Dates: start: 20101027

REACTIONS (2)
  - PLEURISY [None]
  - PULMONARY TUBERCULOSIS [None]
